FAERS Safety Report 9731472 (Version 1)
Quarter: 2013Q4

REPORT INFORMATION
  Report Type: Spontaneous
  Country: AU (occurrence: AU)
  Receive Date: 20131205
  Receipt Date: 20131205
  Transmission Date: 20140711
  Serious: Yes (Hospitalization)
  Sender: FDA-Public Use
  Company Number: AU-009507513-1312AUS000916

PATIENT
  Sex: 0

DRUGS (2)
  1. PEGINTERFERON ALFA-2B [Suspect]
     Indication: HEPATITIS C
     Dosage: UNK
  2. TELAPREVIR [Suspect]
     Indication: HEPATITIS C
     Dosage: UNK

REACTIONS (1)
  - Injection site necrosis [Unknown]
